FAERS Safety Report 25521188 (Version 2)
Quarter: 2025Q3

REPORT INFORMATION
  Report Type: Spontaneous
  Country: EU (occurrence: EU)
  Receive Date: 20250705
  Receipt Date: 20250810
  Transmission Date: 20251020
  Serious: Yes (Other)
  Sender: ALEXION PHARMACEUTICALS
  Company Number: EU-AstraZeneca-CH-00900968AM

PATIENT
  Sex: Female

DRUGS (1)
  1. DAPAGLIFLOZIN [Suspect]
     Active Substance: DAPAGLIFLOZIN
     Indication: Cardiac failure
     Route: 065

REACTIONS (13)
  - Syncope [Unknown]
  - Decubitus ulcer [Unknown]
  - Feeling abnormal [Unknown]
  - Hypertension [Unknown]
  - Blood pressure abnormal [Unknown]
  - Asthenia [Unknown]
  - Insomnia [Unknown]
  - Feelings of worthlessness [Unknown]
  - Nervousness [Unknown]
  - Depressed mood [Unknown]
  - Hypotension [Unknown]
  - Malaise [Unknown]
  - Somnolence [Unknown]
